FAERS Safety Report 6074739-9 (Version None)
Quarter: 2009Q1

REPORT INFORMATION
  Report Type: 
  Country: None (occurrence: None)
  Receive Date: 20090212
  Receipt Date: 20090204
  Transmission Date: 20090719
  Serious: Yes (Other)
  Sender: FDA-Public Use
  Company Number: US-BAYER-200912465NA

PATIENT
  Age: 28 Year
  Sex: Male
  Weight: 93 kg

DRUGS (2)
  1. MAGNEVIST [Suspect]
     Indication: ANGIOGRAM
     Dosage: TOTAL DAILY DOSE: 45 ML  UNIT DOSE: 20 ML
     Route: 042
     Dates: start: 20090203, end: 20090203
  2. MAGNEVIST [Suspect]
     Dosage: AS USED: 5 ML  UNIT DOSE: 5 ML
     Route: 042
     Dates: start: 20090203, end: 20090203

REACTIONS (7)
  - ANAPHYLACTIC REACTION [None]
  - BRONCHOSPASM [None]
  - DYSPNOEA [None]
  - INCONTINENCE [None]
  - LOSS OF CONSCIOUSNESS [None]
  - RASH GENERALISED [None]
  - VOMITING [None]
